FAERS Safety Report 24627061 (Version 1)
Quarter: 2024Q4

REPORT INFORMATION
  Report Type: Other
  Country: CN (occurrence: CN)
  Receive Date: 20241115
  Receipt Date: 20241115
  Transmission Date: 20250114
  Serious: Yes (Death)
  Sender: ANI
  Company Number: CN-ANIPHARMA-012797

PATIENT
  Age: 52 Year
  Sex: Female

DRUGS (4)
  1. TEMOZOLOMIDE [Suspect]
     Active Substance: TEMOZOLOMIDE
     Indication: Malignant melanoma stage III
     Dosage: FROM D1-D5
     Dates: start: 2021
  2. TEPLIZUMAB [Concomitant]
     Active Substance: TEPLIZUMAB
     Indication: Malignant melanoma stage III
     Dosage: ON DAY 1
     Dates: start: 2021
  3. TEMOZOLOMIDE [Suspect]
     Active Substance: TEMOZOLOMIDE
     Indication: Metastases to central nervous system
     Dosage: FROM D1-D5
     Dates: start: 2021
  4. TEPLIZUMAB [Concomitant]
     Active Substance: TEPLIZUMAB
     Indication: Metastases to central nervous system
     Dosage: ON DAY 1
     Dates: start: 2021

REACTIONS (1)
  - Drug ineffective [Fatal]
